FAERS Safety Report 21711200 (Version 1)
Quarter: 2022Q4

REPORT INFORMATION
  Report Type: Spontaneous
  Country: US (occurrence: US)
  Receive Date: 20221212
  Receipt Date: 20221212
  Transmission Date: 20230112
  Serious: Yes (Hospitalization)
  Sender: FDA-Public Use
  Company Number: US-GBT-018460

PATIENT
  Sex: Female

DRUGS (1)
  1. OXBRYTA [Suspect]
     Active Substance: VOXELOTOR
     Indication: Product used for unknown indication
     Route: 065

REACTIONS (6)
  - Oxygen saturation decreased [Unknown]
  - Nausea [Unknown]
  - Product size issue [Unknown]
  - Wrong technique in product usage process [Unknown]
  - Therapy cessation [Unknown]
  - Headache [Unknown]
